FAERS Safety Report 20611547 (Version 1)
Quarter: 2022Q1

REPORT INFORMATION
  Report Type: Spontaneous
  Country: SE (occurrence: NO)
  Receive Date: 20220318
  Receipt Date: 20220318
  Transmission Date: 20220424
  Serious: Yes (Other)
  Sender: FDA-Public Use
  Company Number: SE-NOVARTISPH-NVSC2022NO061344

PATIENT

DRUGS (1)
  1. LUTATHERA [Suspect]
     Active Substance: LUTETIUM OXODOTREOTIDE LU-177
     Indication: Product used for unknown indication
     Dosage: UNK (RECEIVED 2 DOSES)
     Route: 065

REACTIONS (2)
  - Disease progression [Unknown]
  - General physical health deterioration [Unknown]
